FAERS Safety Report 9013094 (Version 1)
Quarter: 2013Q1

REPORT INFORMATION
  Report Type: Spontaneous
  Country: FI (occurrence: FI)
  Receive Date: 20130114
  Receipt Date: 20130114
  Transmission Date: 20140127
  Serious: Yes (Other)
  Sender: FDA-Public Use
  Company Number: FI-BAYER-2013-003043

PATIENT
  Sex: Male

DRUGS (5)
  1. ASPIRIN [Suspect]
  2. PARA-TABS [Suspect]
     Indication: ARTHRITIS
     Dosage: UNK
     Dates: start: 201210
  3. MENTHOL CRYSTALS [Concomitant]
     Indication: PAIN
  4. PREDNISOLONE [Concomitant]
     Indication: ARTHRITIS
     Dosage: UNK
     Dates: start: 201210
  5. BURANA [Concomitant]
     Indication: ARTHRITIS
     Dosage: UNK
     Dates: start: 201210

REACTIONS (3)
  - Cushingoid [None]
  - Gout [None]
  - Swelling [None]
